FAERS Safety Report 21888937 (Version 4)
Quarter: 2023Q1

REPORT INFORMATION
  Report Type: Report from Study
  Country: ES (occurrence: ES)
  Receive Date: 20230120
  Receipt Date: 20230206
  Transmission Date: 20230418
  Serious: Yes (Other)
  Sender: FDA-Public Use
  Company Number: ES-002147023-NVSC2023ES010566

PATIENT
  Age: 52 Year
  Sex: Female
  Weight: 62 kg

DRUGS (6)
  1. ALPELISIB [Suspect]
     Active Substance: ALPELISIB
     Indication: Breast cancer
     Dosage: 300 MG
     Route: 048
     Dates: start: 20210625, end: 20221009
  2. PREGABALIN [Concomitant]
     Active Substance: PREGABALIN
     Indication: Trigeminal neuralgia
     Dosage: 300 MG
     Route: 048
     Dates: start: 20171004
  3. INVEGA [Concomitant]
     Active Substance: PALIPERIDONE
     Indication: Schizoaffective disorder depressive type
     Dosage: 18 MG
     Route: 048
     Dates: start: 20210312
  4. LORAZEPAM [Concomitant]
     Active Substance: LORAZEPAM
     Indication: Schizoaffective disorder depressive type
     Dosage: 1 MG
     Route: 048
     Dates: start: 20131002
  5. TRYPTIZOL [Concomitant]
     Active Substance: AMITRIPTYLINE HYDROCHLORIDE
     Indication: Schizoaffective disorder depressive type
     Dosage: 120 MG
     Route: 048
     Dates: start: 20130129
  6. GOSERELIN [Concomitant]
     Active Substance: GOSERELIN
     Indication: Prophylaxis
     Dosage: 3.6 MG
     Route: 062
     Dates: start: 20190919

REACTIONS (1)
  - Uveitis [Recovering/Resolving]

NARRATIVE: CASE EVENT DATE: 20221010
